FAERS Safety Report 12909628 (Version 1)
Quarter: 2016Q4

REPORT INFORMATION
  Report Type: Report from Study
  Country: IN (occurrence: IN)
  Receive Date: 20161104
  Receipt Date: 20161104
  Transmission Date: 20170207
  Serious: Yes (Other)
  Sender: FDA-Public Use
  Company Number: IN-SUN PHARMACEUTICAL INDUSTRIES LTD-2016R1-126808

PATIENT
  Age: 14 Year
  Sex: Female

DRUGS (5)
  1. PIRACETAM [Concomitant]
     Active Substance: PIRACETAM
     Indication: SUPPLEMENTATION THERAPY
     Dosage: 800 MG, QD
     Route: 048
     Dates: start: 20151025
  2. LEVIPIL [Suspect]
     Active Substance: LEVETIRACETAM
     Indication: EPILEPSY
     Dosage: 750 MG, BID
     Route: 048
     Dates: start: 20151025
  3. CLONAZEPAM. [Suspect]
     Active Substance: CLONAZEPAM
     Indication: EPILEPSY
     Dosage: 0.25 MG, QD
     Route: 048
     Dates: start: 20151026
  4. TOPIRAMATE. [Suspect]
     Active Substance: TOPIRAMATE
     Indication: EPILEPSY
     Dosage: 50 MG, QD
     Route: 048
     Dates: start: 2015
  5. PREGABALIN (PLACEBO) [Suspect]
     Active Substance: PREGABALIN
     Indication: GENERALISED TONIC-CLONIC SEIZURE
     Dosage: 5 MG/KG, DAILY
     Route: 048
     Dates: start: 20160706, end: 20160823

REACTIONS (1)
  - Status epilepticus [Recovered/Resolved]

NARRATIVE: CASE EVENT DATE: 20160823
